FAERS Safety Report 5919486-6 (Version None)
Quarter: 2008Q4

REPORT INFORMATION
  Report Type: 
  Country: None (occurrence: None)
  Receive Date: 20081015
  Receipt Date: 20081007
  Transmission Date: 20090506
  Serious: Yes (Other)
  Sender: FDA-Public Use
  Company Number: JP-ELI_LILLY_AND_COMPANY-JP200810003041

PATIENT

DRUGS (6)
  1. HUMALOG [Suspect]
     Dosage: 0.6 IU, EVERY HOUR
     Route: 064
  2. HUMALOG [Suspect]
     Dosage: 18 IU, EACH MORNING
     Route: 064
  3. HUMALOG [Suspect]
     Dosage: 16 IU, DAILY (1/D)
     Route: 064
  4. HUMALOG [Suspect]
     Dosage: 12 IU, EACH EVENING
     Route: 064
  5. HUMALOG [Suspect]
     Dosage: 1.2 IU, EVERY HOUR
     Route: 064
     Dates: end: 20050610
  6. HUMALOG [Suspect]
     Dosage: 64 IU, DAILY (1/D)
     Route: 064
     Dates: end: 20050610

REACTIONS (2)
  - DRUG EXPOSURE DURING PREGNANCY [None]
  - NEONATAL ASPHYXIA [None]
